FAERS Safety Report 4332803-6 (Version None)
Quarter: 2004Q2

REPORT INFORMATION
  Report Type: 
  Country: None (occurrence: None)
  Receive Date: 20040406
  Receipt Date: 20040223
  Transmission Date: 20050107
  Serious: Yes (Hospitalization)
  Sender: FDA-Public Use
  Company Number: PHBS2004CA02633

PATIENT
  Age: 37 Year
  Sex: Female

DRUGS (9)
  1. SYNTOCINON [Suspect]
     Indication: INDUCED LABOUR
  2. ROPIVACAINE [Concomitant]
     Dosage: 20 UG/ML
  3. FENTANYL [Concomitant]
  4. EPINEPHRINE [Concomitant]
  5. ERGONOVINE MALEATE [Concomitant]
  6. CARBOPROST TROMETHAMINE [Concomitant]
  7. MIDAZOLAM HCL [Concomitant]
     Indication: SEDATION
  8. CISATRACURIUM [Concomitant]
     Indication: NEUROMUSCULAR BLOCKADE
  9. MORPHINE [Concomitant]

REACTIONS (32)
  - ACTIVATED PARTIAL THROMBOPLASTIN TIME PROLONGED [None]
  - AMNIOTIC FLUID EMBOLUS [None]
  - BLOOD PRESSURE INCREASED [None]
  - BRUXISM [None]
  - CARDIAC ARREST [None]
  - CARDIAC DISORDER [None]
  - CIRCULATORY COLLAPSE [None]
  - COMA [None]
  - CYANOSIS [None]
  - DILATATION ATRIAL [None]
  - DILATATION VENTRICULAR [None]
  - DISSEMINATED INTRAVASCULAR COAGULATION [None]
  - DRUG EXPOSURE DURING PREGNANCY [None]
  - ELECTROCARDIOGRAM ABNORMAL [None]
  - ELECTROCARDIOGRAM Q WAVES [None]
  - ELECTROCARDIOGRAM T WAVE INVERSION [None]
  - ELECTROMECHANICAL DISSOCIATION [None]
  - HAEMOGLOBIN DECREASED [None]
  - INTERNATIONAL NORMALISED RATIO INCREASED [None]
  - NORMAL NEWBORN [None]
  - OXYGEN SUPPLEMENTATION [None]
  - PALLOR [None]
  - PERINEAL REPAIR BREAKDOWN [None]
  - SINUS TACHYCARDIA [None]
  - SYNCOPE [None]
  - THERAPEUTIC EMBOLISATION [None]
  - TRICUSPID VALVE INCOMPETENCE [None]
  - VACUUM EXTRACTOR DELIVERY [None]
  - VAGINAL HAEMORRHAGE [None]
  - VAGINAL LACERATION [None]
  - VENTRICULAR DYSFUNCTION [None]
  - VOMITING [None]
